FAERS Safety Report 18575824 (Version 2)
Quarter: 2021Q1

REPORT INFORMATION
  Report Type: Spontaneous
  Country: US (occurrence: US)
  Receive Date: 20201203
  Receipt Date: 20210125
  Transmission Date: 20210419
  Serious: Yes (Hospitalization, Disabling, Other)
  Sender: FDA-Public Use
  Company Number: US-PURDUE-USA-2020-0174779

PATIENT
  Age: 32 Year
  Sex: Female

DRUGS (23)
  1. HYDROMORPHONE TABLETS [Suspect]
     Active Substance: HYDROMORPHONE
     Indication: PRODUCT USED FOR UNKNOWN INDICATION
     Dosage: UNK
     Route: 048
  2. PHENERGAN [Concomitant]
     Active Substance: PROMETHAZINE HYDROCHLORIDE
     Dosage: 1 DF, Q6H PRN
     Route: 048
     Dates: start: 20191125
  3. ROXICODONE [Concomitant]
     Active Substance: OXYCODONE HYDROCHLORIDE
     Indication: PAIN
     Dosage: UNK, Q6H PRN (TAKE 1 TO 2TABLET BY MOUTH Q6H PRN UPTO 7 DAYS)
     Route: 048
     Dates: start: 20190421, end: 20190428
  4. COMPAZINE                          /00013302/ [Concomitant]
     Active Substance: PROCHLORPERAZINE EDISYLATE
     Indication: NAUSEA
     Dosage: 1 DF, Q6H PRN (30 DAYS)
     Route: 048
     Dates: start: 20190421, end: 20190521
  5. HYDROMORPHONE HCL (SIMILAR TO 19?892) [Suspect]
     Active Substance: HYDROMORPHONE HYDROCHLORIDE
     Indication: PRODUCT USED FOR UNKNOWN INDICATION
     Dosage: UNK
     Route: 048
  6. PAXIL [Concomitant]
     Active Substance: PAROXETINE HYDROCHLORIDE
     Indication: PRODUCT USED FOR UNKNOWN INDICATION
     Dosage: 50 MG, UNK
     Route: 048
     Dates: start: 20190129, end: 20190806
  7. ATIVAN [Concomitant]
     Active Substance: LORAZEPAM
     Indication: ANXIETY
     Dosage: 0.5 MG, Q6H PRN
     Route: 048
  8. LAMICTAL [Concomitant]
     Active Substance: LAMOTRIGINE
     Indication: PRODUCT USED FOR UNKNOWN INDICATION
     Dosage: 100 MG, BID
     Route: 048
     Dates: start: 20180720, end: 20190919
  9. TRAMADOL. [Suspect]
     Active Substance: TRAMADOL
     Indication: PRODUCT USED FOR UNKNOWN INDICATION
     Dosage: UNK
     Route: 048
  10. BACTROBAN [Concomitant]
     Active Substance: MUPIROCIN\MUPIROCIN CALCIUM
     Indication: PRODUCT USED FOR UNKNOWN INDICATION
     Dosage: UNK, BID (APPLY TOPICALLY 2 TIMES DAILY FOR 14 DAYS)
     Route: 061
  11. HYDROCODONE BITARTRATE AND ACETAMINOPHEN [Suspect]
     Active Substance: ACETAMINOPHEN\HYDROCODONE BITARTRATE
     Indication: PRODUCT USED FOR UNKNOWN INDICATION
     Dosage: UNK
     Route: 048
  12. OSMOLITE [Concomitant]
     Indication: PRODUCT USED FOR UNKNOWN INDICATION
     Dosage: 1 DF, DAILY (0.06G?1.5KCAL/ML LIQ)
     Route: 048
     Dates: start: 20200227
  13. TYLENOL [Concomitant]
     Active Substance: ACETAMINOPHEN
     Indication: PAIN
     Dosage: 1000 MG, Q6H PRN
     Route: 048
     Dates: start: 20180501, end: 20190806
  14. VIBRAMYCIN                         /00055702/ [Concomitant]
     Indication: PRODUCT USED FOR UNKNOWN INDICATION
     Dosage: 1 DF, BID
     Route: 048
     Dates: start: 20190415, end: 20190614
  15. OXYCONTIN [Suspect]
     Active Substance: OXYCODONE HYDROCHLORIDE
     Indication: PRODUCT USED FOR UNKNOWN INDICATION
     Dosage: UNK
     Route: 048
  16. VITAMIN D3 [Concomitant]
     Active Substance: CHOLECALCIFEROL
     Indication: PRODUCT USED FOR UNKNOWN INDICATION
     Dosage: 50000 IU, UNK
     Route: 048
     Dates: start: 20190801
  17. TYLENOL [Concomitant]
     Active Substance: ACETAMINOPHEN
     Indication: HEADACHE
  18. SENOKOT?S [Concomitant]
     Active Substance: DOCUSATE SODIUM\SENNOSIDES
     Indication: PRODUCT USED FOR UNKNOWN INDICATION
     Dosage: 1 DF, BID (8.6?50MG))
     Route: 048
     Dates: start: 20190421, end: 20190919
  19. OXYCODONE HCL CR TABLETS (SIMILAR TO NDA 22?272) [Suspect]
     Active Substance: OXYCODONE HYDROCHLORIDE
     Indication: PRODUCT USED FOR UNKNOWN INDICATION
     Dosage: UNK
     Route: 048
  20. VITAMIN B12 [Concomitant]
     Active Substance: CYANOCOBALAMIN
     Indication: PRODUCT USED FOR UNKNOWN INDICATION
     Dosage: 1000 MCG, MONTHLY
     Route: 048
     Dates: start: 20190801
  21. PHENERGAN [Concomitant]
     Active Substance: PROMETHAZINE HYDROCHLORIDE
     Indication: NAUSEA
     Dosage: 1 DF, Q6H PRN
     Route: 048
     Dates: start: 20190421, end: 20190517
  22. SEROQUEL [Concomitant]
     Active Substance: QUETIAPINE FUMARATE
     Indication: PRODUCT USED FOR UNKNOWN INDICATION
     Dosage: 25?50 MG AT NIGHTLY
     Route: 048
     Dates: start: 20190207, end: 20200226
  23. CHLORHEXIDINE [Concomitant]
     Active Substance: CHLORHEXIDINE
     Indication: PRODUCT USED FOR UNKNOWN INDICATION
     Dosage: UNK, QOD (APPLY TOPICALLY EVERY OTHER DAY FOR 14 DAYS, FOLLOWED BY EVERY 3 DAYS)
     Route: 061

REACTIONS (25)
  - Drug dependence [Unknown]
  - Internal hernia [Unknown]
  - Affective disorder [Unknown]
  - Nausea [Unknown]
  - Obstruction gastric [Unknown]
  - Pelvic abscess [Unknown]
  - Pain in extremity [Unknown]
  - Vomiting [Unknown]
  - Small intestinal obstruction [Unknown]
  - Nodule [Unknown]
  - Ulcer [Unknown]
  - Foreign body reaction [Unknown]
  - Abdominal pain [Unknown]
  - Drug abuse [Unknown]
  - Malnutrition [Unknown]
  - Disability [Unknown]
  - Cystitis [Unknown]
  - Affective disorder [Unknown]
  - Mental disorder [Unknown]
  - Abscess limb [Unknown]
  - Gastroenterostomy [Unknown]
  - Jejunostomy [Unknown]
  - Overdose [Unknown]
  - Migraine with aura [Unknown]
  - Dehydration [Unknown]

NARRATIVE: CASE EVENT DATE: 20150918
